FAERS Safety Report 4613629-2 (Version None)
Quarter: 2005Q1

REPORT INFORMATION
  Report Type: 
  Country: None (occurrence: None)
  Receive Date: 20050315
  Receipt Date: 20020624
  Transmission Date: 20050727
  Serious: Yes (Hospitalization)
  Sender: FDA-Public Use
  Company Number: 3836

PATIENT
  Age: 31 Year
  Sex: Male

DRUGS (6)
  1. ACYCLOVIR [Suspect]
     Dosage: 750 MG IV
     Route: 042
     Dates: start: 20010910, end: 20010911
  2. CEFTRIAXONE [Suspect]
     Dosage: 2 G, IV
     Route: 042
     Dates: start: 20010910, end: 20010911
  3. BENZYLPENICILLIN POTASSIUM [Suspect]
     Dosage: 2.4 G IV
     Route: 042
     Dates: start: 20010910, end: 20010911
  4. THIAMINE [Suspect]
     Dosage: 100 MG IV
     Route: 042
     Dates: start: 20010910
  5. MORPHINE SULFATE [Suspect]
     Dosage: IV
     Route: 042
     Dates: end: 20010910
  6. MIDAZOLAM [Suspect]
     Dosage: IV
     Route: 042
     Dates: start: 20010910

REACTIONS (1)
  - RASH VESICULAR [None]
